FAERS Safety Report 25593991 (Version 1)
Quarter: 2025Q3

REPORT INFORMATION
  Report Type: Other
  Country: US (occurrence: US)
  Receive Date: 20250723
  Receipt Date: 20250723
  Transmission Date: 20251020
  Serious: No
  Sender: TARO
  Company Number: US-TARO PHARMACEUTICALS USA INC.-2024TAR00718

PATIENT

DRUGS (1)
  1. AMMONIUM LACTATE [Suspect]
     Active Substance: AMMONIUM LACTATE
     Indication: Ichthyosis
     Route: 065

REACTIONS (3)
  - Therapeutic response changed [Unknown]
  - Product formulation issue [Unknown]
  - Product substitution issue [Unknown]
